FAERS Safety Report 4901146-1 (Version None)
Quarter: 2006Q1

REPORT INFORMATION
  Report Type: 
  Country: None (occurrence: None)
  Receive Date: 20060201
  Receipt Date: 20060110
  Transmission Date: 20060701
  Serious: Yes (Hospitalization, Other)
  Sender: FDA-Public Use
  Company Number: US_0501109960

PATIENT
  Age: 83 Year
  Sex: Female
  Weight: 62.7 kg

DRUGS (3)
  1. HUMULIN N [Suspect]
     Indication: DIABETES MELLITUS
     Dosage: 10 U, 2/D SUBCUTANEOUS
     Route: 058
  2. UNSPECIFIED BLOOD PRESSURE MEDICATION [Concomitant]
  3. DIOVAN [Concomitant]

REACTIONS (35)
  - ACCIDENT [None]
  - AMNESIA [None]
  - BACK INJURY [None]
  - BALANCE DISORDER [None]
  - BLOOD GLUCOSE DECREASED [None]
  - BLOOD GLUCOSE INCREASED [None]
  - DECUBITUS ULCER [None]
  - DIABETES MELLITUS INADEQUATE CONTROL [None]
  - DIFFICULTY IN WALKING [None]
  - DISORIENTATION [None]
  - DISTURBANCE IN ATTENTION [None]
  - FALL [None]
  - FATIGUE [None]
  - FEELING ABNORMAL [None]
  - FRACTURE [None]
  - HEAD INJURY [None]
  - HIP FRACTURE [None]
  - LOWER LIMB FRACTURE [None]
  - LYMPHADENOPATHY [None]
  - MEDICAL DEVICE COMPLICATION [None]
  - MEMORY IMPAIRMENT [None]
  - MENTAL DISORDER [None]
  - MOBILITY DECREASED [None]
  - MYOCARDIAL INFARCTION [None]
  - PAIN [None]
  - PAIN IN EXTREMITY [None]
  - PATELLA FRACTURE [None]
  - PHARMACEUTICAL PRODUCT COMPLAINT [None]
  - POOR PERIPHERAL CIRCULATION [None]
  - PRURITUS [None]
  - SHOCK [None]
  - SPEECH DISORDER [None]
  - UNEVALUABLE EVENT [None]
  - VISION BLURRED [None]
  - WALKING AID USER [None]
